FAERS Safety Report 9737108 (Version 2)
Quarter: 2014Q1

REPORT INFORMATION
  Report Type: Report from Study
  Country: JP (occurrence: JP)
  Receive Date: 20131206
  Receipt Date: 20140108
  Transmission Date: 20141002
  Serious: No
  Sender: FDA-Public Use
  Company Number: JP-UCBSA-104999

PATIENT
  Age: 72 Year
  Sex: Male

DRUGS (6)
  1. E KEPPRA [Suspect]
     Indication: SIMPLE PARTIAL SEIZURES
     Route: 048
     Dates: start: 20130625
  2. E KEPPRA [Suspect]
     Indication: PARTIAL SEIZURES WITH SECONDARY GENERALISATION
     Route: 048
     Dates: start: 20130625
  3. E KEPPRA [Suspect]
     Indication: SIMPLE PARTIAL SEIZURES
     Route: 048
     Dates: start: 20130621, end: 20130624
  4. E KEPPRA [Suspect]
     Indication: PARTIAL SEIZURES WITH SECONDARY GENERALISATION
     Route: 048
     Dates: start: 20130621, end: 20130624
  5. TEGRETOL [Suspect]
     Indication: SIMPLE PARTIAL SEIZURES
     Dosage: 200MG DAILY
     Route: 048
     Dates: start: 20130621
  6. TEGRETOL [Suspect]
     Indication: PARTIAL SEIZURES WITH SECONDARY GENERALISATION
     Dosage: 200MG DAILY
     Route: 048
     Dates: start: 20130621

REACTIONS (1)
  - Platelet count decreased [Not Recovered/Not Resolved]
